FAERS Safety Report 7825321-1 (Version None)
Quarter: 2011Q4

REPORT INFORMATION
  Report Type: 
  Country: None (occurrence: None)
  Receive Date: 20111019
  Receipt Date: 20111017
  Transmission Date: 20120403
  Serious: Yes (Hospitalization)
  Sender: FDA-Public Use
  Company Number: FR-GLAXOSMITHKLINE-B0755757A

PATIENT
  Sex: Female

DRUGS (3)
  1. PAROXETINE HCL [Suspect]
     Indication: DEPRESSION
     Dosage: 20MG PER DAY
     Route: 048
     Dates: start: 20110831, end: 20110831
  2. STRUCTUM [Concomitant]
     Indication: OSTEOARTHRITIS
     Route: 048
  3. NIDREL [Concomitant]
     Indication: HYPERTENSION
     Route: 048

REACTIONS (11)
  - NAUSEA [None]
  - DIARRHOEA [None]
  - MUSCULAR WEAKNESS [None]
  - PRESYNCOPE [None]
  - CHEST PAIN [None]
  - HYPERHIDROSIS [None]
  - MALAISE [None]
  - ASTHENIA [None]
  - HYPERTENSION [None]
  - ANXIETY [None]
  - PALLOR [None]
